FAERS Safety Report 20345870 (Version 2)
Quarter: 2023Q2

REPORT INFORMATION
  Report Type: Spontaneous
  Country: US (occurrence: US)
  Receive Date: 20220118
  Receipt Date: 20230616
  Transmission Date: 20230722
  Serious: No
  Sender: FDA-Public Use
  Company Number: US-UROGEN PHARMA LTD.-2021-UGN-000109

PATIENT

DRUGS (6)
  1. JELMYTO [Suspect]
     Active Substance: MITOMYCIN
     Indication: Transitional cell cancer of the renal pelvis and ureter
     Dosage: 1 MG, ONE TIMES PER WEEK (INSTILLATION)
     Dates: start: 20211103, end: 20211103
  2. JELMYTO [Suspect]
     Active Substance: MITOMYCIN
     Dosage: 1 MG, ONE TIMES PER WEEK (INSTILLATION)
     Dates: start: 20211110, end: 20211110
  3. JELMYTO [Suspect]
     Active Substance: MITOMYCIN
     Dosage: 1 MG, ONE TIMES PER WEEK (INSTILLATION)
     Dates: start: 20211117, end: 20211117
  4. JELMYTO [Suspect]
     Active Substance: MITOMYCIN
     Dosage: 1 MG, ONE TIMES PER WEEK (INSTILLATION)
     Dates: start: 20211119, end: 20211119
  5. JELMYTO [Suspect]
     Active Substance: MITOMYCIN
     Dosage: 1 MG, ONE TIMES PER WEEK (INSTILLATION)
     Dates: start: 20211124, end: 20211124
  6. BACTRIM [Concomitant]
     Active Substance: SULFAMETHOXAZOLE\TRIMETHOPRIM
     Indication: Product used for unknown indication
     Dosage: UNK

REACTIONS (2)
  - Urticaria [Recovered/Resolved]
  - Rash [Recovered/Resolved]

NARRATIVE: CASE EVENT DATE: 20211101
